FAERS Safety Report 17855321 (Version 1)
Quarter: 2020Q2

REPORT INFORMATION
  Report Type: Report from Study
  Country: DE (occurrence: DE)
  Receive Date: 20200603
  Receipt Date: 20200603
  Transmission Date: 20200714
  Serious: Yes (Hospitalization, Other)
  Sender: FDA-Public Use
  Company Number: DE-MYLANLABS-2020M1053168

PATIENT
  Age: 42 Year
  Sex: Female
  Weight: 71 kg

DRUGS (3)
  1. DOCETAXEL. [Suspect]
     Active Substance: DOCETAXEL
     Indication: BREAST CANCER METASTATIC
     Dosage: 75 MILLIGRAM/SQ. METER, Q3WLATEST ADMINISTRATIONS PRIOR  HYPOKALEMIAM15/FEB/2017
     Route: 042
     Dates: start: 20101006
  2. TRASTUZUMAB. [Suspect]
     Active Substance: TRASTUZUMAB
     Indication: BREAST CANCER METASTATIC
     Dosage: 6 MILLIGRAM/KILOGRAM, Q3W LATEST ADMINISTRATIONS OF PRIOR HYPOKALEMIA 15/FEB/2017
     Route: 042
     Dates: start: 20161006
  3. PERTUZUMAB. [Suspect]
     Active Substance: PERTUZUMAB
     Indication: BREAST CANCER METASTATIC
     Dosage: 420 MILLIGRAM(LATEST ADMINISTRATIONS OF PERTUZUMAB PRIOR TO HYPOKALEMIA WAS ON 15/FEB/2017)
     Route: 042
     Dates: start: 20161006

REACTIONS (17)
  - Myalgia [Unknown]
  - Neuropathy peripheral [Unknown]
  - Febrile neutropenia [Recovered/Resolved]
  - Neutropenia [Not Recovered/Not Resolved]
  - Gastritis [Recovered/Resolved]
  - Anaemia [Not Recovered/Not Resolved]
  - Hypokalaemia [Recovered/Resolved]
  - Sinusitis [Unknown]
  - Dysgeusia [Unknown]
  - Alopecia [Not Recovered/Not Resolved]
  - Arthralgia [Unknown]
  - Diarrhoea [Unknown]
  - Fatigue [Unknown]
  - Dry skin [Unknown]
  - Paronychia [Unknown]
  - Oedema peripheral [Unknown]
  - Nasopharyngitis [Unknown]

NARRATIVE: CASE EVENT DATE: 20160329
